FAERS Safety Report 8871251 (Version 1)
Quarter: 2012Q4

REPORT INFORMATION
  Report Type: 
  Country: BR (occurrence: BR)
  Receive Date: 20121029
  Receipt Date: 20121029
  Transmission Date: 20130627
  Serious: Yes (Hospitalization)
  Sender: FDA-Public Use
  Company Number: BR-BRISTOL-MYERS SQUIBB COMPANY-17062522

PATIENT
  Age: 58 Year
  Sex: Female
  Weight: 76 kg

DRUGS (3)
  1. ONGLYZA TABS 2.5 MG [Suspect]
     Indication: TYPE 2 DIABETES MELLITUS
     Dosage: 17Oct12 dose increased 5mg
     Route: 048
  2. CALTREN [Concomitant]
  3. HYPERIUM [Concomitant]

REACTIONS (2)
  - Renal transplant [Unknown]
  - Congenital cystic kidney disease [Unknown]
